FAERS Safety Report 5451812-7 (Version None)
Quarter: 2007Q3

REPORT INFORMATION
  Report Type: 
  Country: None (occurrence: None)
  Receive Date: 20070912
  Receipt Date: 20070905
  Transmission Date: 20080115
  Serious: Yes (Hospitalization)
  Sender: FDA-Public Use
  Company Number: LTI2007A00243

PATIENT
  Age: 73 Year
  Sex: Male

DRUGS (7)
  1. LEUPROLIDE ACETATE [Suspect]
     Indication: PROSTATE CANCER
     Dosage: 11.25 MG (11.25 MG, 1 IN 3 M) SUBCUTANEOUS
     Route: 058
     Dates: start: 20070705
  2. ATORVASTATIN CALCIUM [Suspect]
     Dosage: 80 MG ORAL
     Route: 048
     Dates: start: 20070720, end: 20070807
  3. CASODEX [Suspect]
     Indication: PROSTATE CANCER
     Dosage: 50 MG ORAL, 50 MG ORAL
     Route: 048
     Dates: start: 20070705, end: 20070807
  4. CASODEX [Suspect]
     Indication: PROSTATE CANCER
     Dosage: 50 MG ORAL, 50 MG ORAL
     Route: 048
     Dates: start: 20070810
  5. OMEPRAZOLE [Suspect]
     Dosage: 80 MG (40 MG, 2 IN 1 D) ORAL
     Route: 048
     Dates: start: 20070720, end: 20070807
  6. SECTRAL [Concomitant]
  7. DISCOTRINE (GLYCERYL TRINITRATE) [Concomitant]

REACTIONS (11)
  - ACUTE CORONARY SYNDROME [None]
  - CELL DEATH [None]
  - CHOLESTASIS [None]
  - CONDITION AGGRAVATED [None]
  - DISSEMINATED INTRAVASCULAR COAGULATION [None]
  - HAEMOLYSIS [None]
  - LIVER DISORDER [None]
  - METASTASES TO BONE MARROW [None]
  - PANCYTOPENIA [None]
  - TRANSAMINASES INCREASED [None]
  - WEIGHT DECREASED [None]
